FAERS Safety Report 8577546-8 (Version None)
Quarter: 2012Q3

REPORT INFORMATION
  Report Type: 
  Country: None (occurrence: None)
  Receive Date: 20120807
  Receipt Date: 20120726
  Transmission Date: 20120928
  Serious: Yes (Hospitalization)
  Sender: FDA-Public Use
  Company Number: US-ROCHE-1093281

PATIENT
  Sex: Male

DRUGS (5)
  1. RITUXAN [Suspect]
     Indication: ILL-DEFINED DISORDER
     Dosage: TREATMENT GIVEN ONCE AND REPEATED 2 WEEKS LATER.
     Route: 042
     Dates: start: 20101001
  2. RITUXAN [Suspect]
     Dosage: GIVEN ONCE.
     Dates: start: 20110401
  3. RITUXAN [Suspect]
     Dosage: GIVEN ONCE.
     Dates: start: 20120301
  4. RITUXAN [Suspect]
     Dosage: TREATMENT REPEATED 1 WEEK LATER
     Dates: start: 20110101
  5. RITUXAN [Suspect]
     Dosage: GIVEN ONCE.
     Dates: start: 20111001

REACTIONS (5)
  - NUCLEAR MAGNETIC RESONANCE IMAGING ABNORMAL [None]
  - B-LYMPHOCYTE COUNT DECREASED [None]
  - MALAISE [None]
  - HUMAN ANTICHIMERIC ANTIBODY POSITIVE [None]
  - ILL-DEFINED DISORDER [None]
